FAERS Safety Report 8165372-3 (Version None)
Quarter: 2012Q1

REPORT INFORMATION
  Report Type: 
  Country: None (occurrence: None)
  Receive Date: 20120222
  Receipt Date: 20120222
  Transmission Date: 20120608
  Serious: No
  Sender: FDA-Public Use
  Company Number: None

PATIENT
  Age: 38 Year
  Sex: Male

DRUGS (2)
  1. AZITHROMYCIN [Concomitant]
  2. BACTRIM [Suspect]
     Dates: start: 20100414, end: 20100502

REACTIONS (2)
  - SEPSIS [None]
  - HEPATITIS CHOLESTATIC [None]
